FAERS Safety Report 22083416 (Version 1)
Quarter: 2023Q1

REPORT INFORMATION
  Report Type: Spontaneous
  Country: US (occurrence: None)
  Receive Date: 20230309
  Receipt Date: 20230309
  Transmission Date: 20230417
  Serious: Yes (Life-Threatening, Hospitalization, Disabling)
  Sender: FDA-Public Use
  Company Number: None

PATIENT
  Age: 21 Year
  Sex: Female
  Weight: 64.8 kg

DRUGS (3)
  1. AIMOVIG [Suspect]
     Active Substance: ERENUMAB-AOOE
     Indication: Migraine
     Dosage: OTHER QUANTITY : 1 INJECTION(S)?OTHER FREQUENCY : ONCE A MONTH?
     Route: 058
  2. SUMATRIPTAN [Concomitant]
     Active Substance: SUMATRIPTAN
  3. lamactal [Concomitant]

REACTIONS (5)
  - Paranoia [None]
  - Psychotic disorder [None]
  - Constipation [None]
  - Alopecia [None]
  - Hypophagia [None]

NARRATIVE: CASE EVENT DATE: 20211120
